FAERS Safety Report 17997666 (Version 2)
Quarter: 2020Q3

REPORT INFORMATION
  Report Type: Report from Study
  Country: None (occurrence: AU)
  Receive Date: 20200708
  Receipt Date: 20200721
  Transmission Date: 20201103
  Serious: Yes (Death)
  Sender: FDA-Public Use
  Company Number: AU-ABBVIE-20P-008-3315156-00

PATIENT
  Age: 73 Year

DRUGS (2)
  1. LOW?DOSE CYTARABINE AND DECITABINE [Concomitant]
     Indication: PRODUCT USED FOR UNKNOWN INDICATION
     Dates: start: 201912
  2. VENETOCLAX. [Suspect]
     Active Substance: VENETOCLAX
     Indication: ACUTE MYELOID LEUKAEMIA
     Route: 048
     Dates: start: 20191210, end: 20200106

REACTIONS (3)
  - Cytopenia [Not Recovered/Not Resolved]
  - Acute myeloid leukaemia [Fatal]
  - Blast cells [Unknown]

NARRATIVE: CASE EVENT DATE: 20200214
